FAERS Safety Report 5753723-6 (Version None)
Quarter: 2008Q2

REPORT INFORMATION
  Report Type: 
  Country: None (occurrence: None)
  Receive Date: 20080530
  Receipt Date: 20080520
  Transmission Date: 20081010
  Serious: Yes (Hospitalization)
  Sender: FDA-Public Use
  Company Number: JP-JNJFOC-20071006303

PATIENT
  Sex: Female
  Weight: 40 kg

DRUGS (19)
  1. REMICADE [Suspect]
     Route: 042
  2. REMICADE [Suspect]
     Indication: RHEUMATOID ARTHRITIS
     Route: 042
  3. METHOTREXATE [Suspect]
     Route: 048
  4. METHOTREXATE [Suspect]
     Route: 048
  5. METHOTREXATE [Suspect]
     Indication: RHEUMATOID ARTHRITIS
     Route: 048
  6. PREDNISOLONE [Suspect]
     Indication: RHEUMATOID ARTHRITIS
     Route: 048
  7. ALOSENN [Concomitant]
     Indication: CONSTIPATION
     Route: 048
  8. ISCOTIN [Concomitant]
     Route: 048
  9. ISCOTIN [Concomitant]
     Indication: ANTIBIOTIC PROPHYLAXIS
     Route: 048
  10. AMARYL [Concomitant]
     Route: 048
  11. AMARYL [Concomitant]
     Indication: DIABETES MELLITUS
     Route: 048
  12. SEIBULE [Concomitant]
  13. SEIBULE [Concomitant]
     Indication: DIABETES MELLITUS
  14. BUFFERIN [Concomitant]
     Indication: PROPHYLAXIS
     Route: 048
  15. BLOPRESS [Concomitant]
     Indication: HYPERTENSION
     Route: 048
  16. TORSEMIDE [Concomitant]
     Indication: HYPERTENSION
     Route: 048
  17. PARIET [Concomitant]
     Indication: PROPHYLAXIS AGAINST GASTROINTESTINAL ULCER
     Route: 048
  18. SELBEX [Concomitant]
     Indication: PROPHYLAXIS AGAINST GASTROINTESTINAL ULCER
     Route: 048
  19. AMLODIPINE [Concomitant]
     Indication: HYPERTENSION
     Route: 048

REACTIONS (1)
  - PNEUMOCYSTIS JIROVECI PNEUMONIA [None]
